FAERS Safety Report 8223764-8 (Version None)
Quarter: 2012Q1

REPORT INFORMATION
  Report Type: 
  Country: None (occurrence: None)
  Receive Date: 20120321
  Receipt Date: 20120312
  Transmission Date: 20120608
  Serious: Yes (Hospitalization)
  Sender: FDA-Public Use
  Company Number: JP-JNJFOC-20120308027

PATIENT
  Age: 70 Year
  Sex: Female

DRUGS (2)
  1. ALL OTHER THERAPEUTIC PRODUCTS [Interacting]
     Indication: PRODUCT USED FOR UNKNOWN INDICATION
     Route: 065
  2. FENTANYL-100 [Suspect]
     Indication: CANCER PAIN
     Route: 062

REACTIONS (3)
  - ANALGESIC DRUG LEVEL INCREASED [None]
  - DRUG INTERACTION [None]
  - RESPIRATORY DEPRESSION [None]
